FAERS Safety Report 15627199 (Version 1)
Quarter: 2018Q4

REPORT INFORMATION
  Report Type: Spontaneous
  Country: IL (occurrence: IL)
  Receive Date: 20181116
  Receipt Date: 20181116
  Transmission Date: 20190205
  Serious: Yes (Hospitalization)
  Sender: FDA-Public Use
  Company Number: IL-TEVA-2018-IL-975468

PATIENT
  Age: 80 Year
  Sex: Female

DRUGS (7)
  1. AUGMENTIN [Concomitant]
     Active Substance: AMOXICILLIN\CLAVULANATE POTASSIUM
     Route: 065
  2. LIPITOR [Concomitant]
     Active Substance: ATORVASTATIN CALCIUM
     Route: 065
  3. FUSID [FUROSEMIDE] [Suspect]
     Active Substance: FUROSEMIDE
     Indication: PULMONARY CONGESTION
     Route: 065
  4. EZETROL [Concomitant]
     Active Substance: EZETIMIBE
     Route: 065
  5. MIRO [Concomitant]
     Route: 065
  6. DIMITONE [Concomitant]
     Route: 065
  7. LOSEC [Concomitant]
     Active Substance: OMEPRAZOLE
     Route: 065

REACTIONS (1)
  - Blood creatinine increased [Unknown]
